FAERS Safety Report 6502103-4 (Version None)
Quarter: 2009Q4

REPORT INFORMATION
  Report Type: 
  Country: None (occurrence: None)
  Receive Date: 20091214
  Receipt Date: 20091203
  Transmission Date: 20100525
  Serious: Yes (Death, Hospitalization)
  Sender: FDA-Public Use
  Company Number: 2009EN000302

PATIENT
  Age: 67 Year
  Sex: Male

DRUGS (4)
  1. ABELCET [Suspect]
     Indication: MUCORMYCOSIS
     Dosage: IV
     Route: 042
  2. POSACONAZOLE [Concomitant]
  3. PROGRAF [Concomitant]
  4. CELLCEPT [Concomitant]

REACTIONS (1)
  - DEATH [None]
